FAERS Safety Report 5850614-7 (Version None)
Quarter: 2008Q3

REPORT INFORMATION
  Report Type: 
  Country: None (occurrence: None)
  Receive Date: 20080818
  Receipt Date: 20080806
  Transmission Date: 20090109
  Serious: Yes (Hospitalization)
  Sender: FDA-Public Use
  Company Number: 2008BI019025

PATIENT
  Age: 38 Year
  Sex: Female

DRUGS (7)
  1. AVONEX [Suspect]
     Indication: MULTIPLE SCLEROSIS
     Dosage: 30 UG; QW; IM
     Route: 030
     Dates: start: 20070513
  2. PROZAC [Concomitant]
  3. GEODON [Concomitant]
  4. NAPRELAN [Concomitant]
  5. TOPAMAX [Concomitant]
  6. PROMETMAZINE [Concomitant]
  7. ADDERALL 10 [Concomitant]

REACTIONS (9)
  - CONDITION AGGRAVATED [None]
  - CYSTITIS [None]
  - DEHYDRATION [None]
  - DRUG LEVEL DECREASED [None]
  - FEELING HOT [None]
  - HEPATIC ENZYME ABNORMAL [None]
  - MOBILITY DECREASED [None]
  - MULTIPLE SCLEROSIS [None]
  - RENAL FAILURE [None]
